FAERS Safety Report 5658735-9 (Version None)
Quarter: 2008Q1

REPORT INFORMATION
  Report Type: 
  Country: None (occurrence: None)
  Receive Date: 20080310
  Receipt Date: 20070409
  Transmission Date: 20080703
  Serious: No
  Sender: FDA-Public Use
  Company Number: US-BAYER-200711072BCC

PATIENT
  Age: 51 Year
  Sex: Female
  Weight: 54 kg

DRUGS (12)
  1. ALEVE [Suspect]
     Indication: ACCIDENTAL EXPOSURE
     Dosage: TOTAL DAILY DOSE: 1320 MG  UNIT DOSE: 220 MG
     Route: 048
     Dates: start: 20070409
  2. BACLOFEN [Concomitant]
  3. BENADRYL [Concomitant]
  4. PHAZYME [Concomitant]
  5. ADVIL [Concomitant]
  6. TYLENOL (CAPLET) [Concomitant]
  7. PAXIL [Concomitant]
  8. NEURONTIN [Concomitant]
  9. LORAZEPAM [Concomitant]
  10. VITAMIN [Concomitant]
  11. NIACIN [Concomitant]
  12. ALBUTEROL [Concomitant]

REACTIONS (2)
  - ACCIDENTAL EXPOSURE [None]
  - NO ADVERSE EVENT [None]
